FAERS Safety Report 12500398 (Version 2)
Quarter: 2016Q3

REPORT INFORMATION
  Report Type: Spontaneous
  Country: US (occurrence: US)
  Receive Date: 20160627
  Receipt Date: 20160719
  Transmission Date: 20161109
  Serious: Yes (Other)
  Sender: FDA-Public Use
  Company Number: US-PFIZER INC-2016200829

PATIENT
  Age: 60 Year
  Sex: Male

DRUGS (6)
  1. XGEVA [Concomitant]
     Active Substance: DENOSUMAB
     Dosage: UNK
  2. COREG [Concomitant]
     Active Substance: CARVEDILOL
     Dosage: UNK
  3. BABY ASPIRIN [Concomitant]
     Active Substance: ASPIRIN
     Dosage: UNK
  4. GARLIC. [Concomitant]
     Active Substance: GARLIC
  5. SUTENT [Suspect]
     Active Substance: SUNITINIB MALATE
     Indication: PHAEOCHROMOCYTOMA MALIGNANT
     Dosage: 50 MG, CYCLIC (28 DAYS ON/14 DAYS OFF)
     Dates: start: 20160601, end: 20160604
  6. HYDRALAZINE [Concomitant]
     Active Substance: HYDRALAZINE HYDROCHLORIDE
     Dosage: UNK

REACTIONS (4)
  - Blood pressure increased [Recovered/Resolved]
  - Headache [Unknown]
  - Renal impairment [Unknown]
  - Product use issue [Unknown]
